FAERS Safety Report 6610841-8 (Version None)
Quarter: 2010Q1

REPORT INFORMATION
  Report Type: 
  Country: None (occurrence: None)
  Receive Date: 20100219
  Receipt Date: 20100201
  Transmission Date: 20100710
  Serious: Yes (Hospitalization, Disabling)
  Sender: FDA-Public Use
  Company Number: 2008-00172FE

PATIENT
  Age: 14 Year
  Sex: Male

DRUGS (4)
  1. ZOMACTON (SOMATROPIN) POWDER FOR INJECTION 4 MG [Suspect]
     Indication: GROWTH HORMONE DEFICIENCY
     Dosage: SUBCUTANEOUS
     Route: 058
     Dates: start: 20070322, end: 20080209
  2. LEVOTHYROXINE SODIUM [Concomitant]
  3. IFOSFAMIDE [Concomitant]
  4. DOXORUBICIN HCL [Concomitant]

REACTIONS (2)
  - GRAND MAL CONVULSION [None]
  - NEURILEMMOMA MALIGNANT [None]
